FAERS Safety Report 7167926-X (Version None)
Quarter: 2010Q4

REPORT INFORMATION
  Report Type: 
  Country: None (occurrence: None)
  Receive Date: 20101216
  Receipt Date: 20101210
  Transmission Date: 20110411
  Serious: Yes (Other)
  Sender: FDA-Public Use
  Company Number: JP-PFIZER INC-2010169584

PATIENT
  Age: 41 Year
  Sex: Male

DRUGS (3)
  1. CHAMPIX [Suspect]
     Indication: SMOKING CESSATION THERAPY
     Dosage: 2 MG PER DAY
     Route: 048
     Dates: start: 20100930, end: 20101020
  2. PRANLUKAST [Suspect]
     Indication: ASTHMA
     Dosage: 450 MG PER DAY
     Route: 048
     Dates: end: 20101022
  3. SYMBICORT [Concomitant]
     Indication: ASTHMA
     Dosage: UNK
     Route: 048

REACTIONS (8)
  - ALANINE AMINOTRANSFERASE INCREASED [None]
  - ASPARTATE AMINOTRANSFERASE INCREASED [None]
  - BLOOD CREATINE PHOSPHOKINASE INCREASED [None]
  - HEADACHE [None]
  - MYALGIA [None]
  - POLLAKIURIA [None]
  - STOMATITIS [None]
  - THIRST [None]
